FAERS Safety Report 7306919-6 (Version None)
Quarter: 2011Q1

REPORT INFORMATION
  Report Type: 
  Country: None (occurrence: None)
  Receive Date: 20110223
  Receipt Date: 20110210
  Transmission Date: 20110831
  Serious: No
  Sender: FDA-Public Use
  Company Number: US-BIOGENIDEC-2010BI037693

PATIENT
  Age: 55 Year
  Sex: Male

DRUGS (3)
  1. TYSABRI [Suspect]
     Route: 042
  2. TYSABRI [Suspect]
     Route: 042
     Dates: start: 20100603, end: 20100901
  3. TYSABRI [Suspect]
     Indication: MULTIPLE SCLEROSIS
     Route: 042
     Dates: start: 20080429, end: 20100201

REACTIONS (8)
  - SCHAMBERG'S DISEASE [None]
  - CONSTIPATION [None]
  - COGNITIVE DISORDER [None]
  - HYPERSENSITIVITY [None]
  - ALLERGY TO ANIMAL [None]
  - MEMORY IMPAIRMENT [None]
  - RASH [None]
  - MUSCULAR WEAKNESS [None]
